FAERS Safety Report 4698270-8 (Version None)
Quarter: 2005Q2

REPORT INFORMATION
  Report Type: 
  Country: None (occurrence: None)
  Receive Date: 20050623
  Receipt Date: 20050614
  Transmission Date: 20051028
  Serious: Yes (Hospitalization)
  Sender: FDA-Public Use
  Company Number: FR-SANOFI-SYNTHELABO-F01200501011

PATIENT
  Sex: Female

DRUGS (3)
  1. OXALIPLATIN [Suspect]
     Indication: COLORECTAL CANCER METASTATIC
     Route: 042
     Dates: start: 20050106, end: 20050106
  2. CAPECITABINE [Suspect]
     Dosage: 3050 MG DAILY FOR 2 WEEKS, Q3W
     Route: 048
     Dates: start: 20050106, end: 20050120
  3. BEVACIZUMAB OR PLACEBO [Suspect]
     Route: 042
     Dates: start: 20050106, end: 20050106

REACTIONS (2)
  - LUNG DISORDER [None]
  - PAIN [None]
